FAERS Safety Report 4765657-4 (Version None)
Quarter: 2005Q3

REPORT INFORMATION
  Report Type: 
  Country: None (occurrence: None)
  Receive Date: 20050906
  Receipt Date: 20050823
  Transmission Date: 20060218
  Serious: Yes (Hospitalization)
  Sender: FDA-Public Use
  Company Number: 2005EU001901

PATIENT
  Age: 50 Year
  Sex: Male

DRUGS (7)
  1. FK506(TACROLIMUS) CAPSULE [Suspect]
     Indication: RENAL TRANSPLANT
     Dosage: 4.00 MG, /D, ORAL
     Route: 048
     Dates: start: 20040909
  2. MYCOPHENOLATE MOFETIL(MYCOPHENOLATE MOFETIL) [Suspect]
     Dosage: 2.00 G, /D, ORAL
     Route: 048
     Dates: start: 20040916
  3. DACLIZUMAB (DACLIZUMAB) [Suspect]
     Indication: RENAL TRANSPLANT
     Dosage: 100.00 MG, IV NOS
     Route: 042
     Dates: start: 20040807, end: 20040930
  4. PREDNISONE [Suspect]
     Indication: RENAL TRANSPLANT
     Dosage: 15.00 MG/D, ORAL
     Route: 048
     Dates: start: 20040823
  5. METOPROLOL TARTRATE [Concomitant]
  6. FUROSEMIDE [Concomitant]
  7. ALLOPURINOL [Concomitant]

REACTIONS (3)
  - COMPLICATIONS OF TRANSPLANTED KIDNEY [None]
  - DIABETIC GANGRENE [None]
  - PYELONEPHRITIS [None]
